FAERS Safety Report 7478779-4 (Version None)
Quarter: 2011Q2

REPORT INFORMATION
  Report Type: 
  Country: None (occurrence: None)
  Receive Date: 20110513
  Receipt Date: 20110503
  Transmission Date: 20111010
  Serious: Yes (Other)
  Sender: FDA-Public Use
  Company Number: US-JNJFOC-20110410466

PATIENT
  Sex: Female

DRUGS (2)
  1. LEVAQUIN [Suspect]
     Indication: PRODUCT USED FOR UNKNOWN INDICATION
     Route: 065
  2. LEVAQUIN [Suspect]
     Route: 065

REACTIONS (14)
  - DEAFNESS [None]
  - MALAISE [None]
  - SINUS TACHYCARDIA [None]
  - HYPERTENSION [None]
  - NERVOUS SYSTEM DISORDER [None]
  - PAIN [None]
  - MYOCARDIAL OEDEMA [None]
  - ARTHRALGIA [None]
  - MYALGIA [None]
  - AUTONOMIC NERVOUS SYSTEM IMBALANCE [None]
  - PYREXIA [None]
  - TENDON INJURY [None]
  - MUSCULAR WEAKNESS [None]
  - LOSS OF CONSCIOUSNESS [None]
